FAERS Safety Report 11428096 (Version 1)
Quarter: 2015Q3

REPORT INFORMATION
  Report Type: Spontaneous
  Country: US (occurrence: US)
  Receive Date: 20150828
  Receipt Date: 20150828
  Transmission Date: 20151125
  Serious: Yes (Other)
  Sender: FDA-Public Use
  Company Number: US-ROCHE-1276759

PATIENT
  Age: 51 Year
  Sex: Female

DRUGS (4)
  1. INCIVEK [Concomitant]
     Active Substance: TELAPREVIR
     Indication: HEPATITIS C
     Route: 048
     Dates: start: 20130726, end: 20130818
  2. PEGASYS [Suspect]
     Active Substance: PEGINTERFERON ALFA-2A
     Indication: HEPATITIS C
     Route: 058
     Dates: start: 20130726, end: 20130818
  3. RIBAVIRIN. [Concomitant]
     Active Substance: RIBAVIRIN
     Indication: HEPATITIS C
     Route: 048
     Dates: start: 20130726, end: 20130818
  4. TYLENOL [Concomitant]
     Active Substance: ACETAMINOPHEN

REACTIONS (1)
  - Papilloedema [Not Recovered/Not Resolved]

NARRATIVE: CASE EVENT DATE: 201308
